FAERS Safety Report 5724789-4 (Version None)
Quarter: 2008Q2

REPORT INFORMATION
  Report Type: 
  Country: None (occurrence: None)
  Receive Date: 20080501
  Receipt Date: 20080422
  Transmission Date: 20081010
  Serious: Yes (Life-Threatening, Hospitalization)
  Sender: FDA-Public Use
  Company Number: GB-JNJFOC-20080405933

PATIENT
  Age: 42 Year
  Sex: Male
  Weight: 80 kg

DRUGS (8)
  1. REMICADE [Suspect]
     Dosage: WEEK 6
  2. REMICADE [Suspect]
  3. REMICADE [Suspect]
     Indication: COLITIS ULCERATIVE
  4. ASACOL [Concomitant]
     Indication: COLITIS ULCERATIVE
  5. FERROUS GLUCONATE [Concomitant]
     Indication: ANAEMIA
  6. GLICLAZIDE [Concomitant]
     Indication: HYPERGLYCAEMIA
  7. MESALAMINE [Concomitant]
     Indication: COLITIS ULCERATIVE
  8. PREDNISOLONE [Concomitant]
     Indication: COLITIS ULCERATIVE

REACTIONS (3)
  - DYSPNOEA [None]
  - INFUSION RELATED REACTION [None]
  - RENAL PAIN [None]
